FAERS Safety Report 20135992 (Version 1)
Quarter: 2021Q4

REPORT INFORMATION
  Report Type: Spontaneous
  Country: US (occurrence: US)
  Receive Date: 20211201
  Receipt Date: 20211201
  Transmission Date: 20220303
  Serious: Yes (Other)
  Sender: FDA-Public Use
  Company Number: US-BIOGENIDEC-2015BI045138

PATIENT
  Sex: Female

DRUGS (1)
  1. TECFIDERA [Suspect]
     Active Substance: DIMETHYL FUMARATE
     Indication: Multiple sclerosis
     Route: 048
     Dates: start: 20140401, end: 20140501

REACTIONS (5)
  - Erythema multiforme [Unknown]
  - Photosensitivity reaction [Unknown]
  - Rash pruritic [Unknown]
  - Urticaria [Unknown]
  - Pruritus [Unknown]
